FAERS Safety Report 6405455-9 (Version None)
Quarter: 2009Q4

REPORT INFORMATION
  Report Type: 
  Country: None (occurrence: None)
  Receive Date: 20091016
  Receipt Date: 20091016
  Transmission Date: 20100525
  Serious: Yes (Disabling)
  Sender: FDA-Public Use
  Company Number: None

PATIENT
  Sex: Female
  Weight: 77.1115 kg

DRUGS (2)
  1. PACERONE [Suspect]
     Indication: HEART RATE IRREGULAR
     Dates: start: 20090213
  2. PACERONE [Suspect]
     Indication: HEART RATE IRREGULAR
     Dates: start: 20090221

REACTIONS (3)
  - BLINDNESS UNILATERAL [None]
  - PHOTOPSIA [None]
  - VISUAL IMPAIRMENT [None]
